FAERS Safety Report 6854093 (Version 7)
Quarter: 2015Q2

REPORT INFORMATION
  Report Type: Report from Study
  Country: US (occurrence: US)
  Receive Date: 20080729
  Receipt Date: 20150604
  Transmission Date: 20150821
  Serious: Yes (Hospitalization, Other)
  Sender: FDA-Public Use
  Company Number: US-BIOGENIDEC-2008BI018353

PATIENT
  Age: 57 Year
  Sex: Female
  Weight: 79 kg

DRUGS (6)
  1. AVONEX [Suspect]
     Active Substance: INTERFERON BETA-1A
     Indication: MULTIPLE SCLEROSIS
     Route: 030
     Dates: start: 20110707
  2. AVONEX [Suspect]
     Active Substance: INTERFERON BETA-1A
     Indication: MULTIPLE SCLEROSIS
     Route: 030
     Dates: start: 20050125
  3. AVONEX [Suspect]
     Active Substance: INTERFERON BETA-1A
     Indication: MULTIPLE SCLEROSIS
     Route: 030
     Dates: start: 20050210
  4. LEVIMER INSULIN [Concomitant]
     Indication: TYPE 2 DIABETES MELLITUS
  5. SEROQUEL [Concomitant]
     Active Substance: QUETIAPINE FUMARATE
     Indication: MULTIPLE SCLEROSIS
  6. AVONEX [Suspect]
     Active Substance: INTERFERON BETA-1A
     Indication: MULTIPLE SCLEROSIS
     Route: 030
     Dates: start: 20050513

REACTIONS (5)
  - Renal cell carcinoma stage I [Recovered/Resolved]
  - Obesity [Recovered/Resolved]
  - Weight decreased [Unknown]
  - Injection site pain [Unknown]
  - Fistula [Recovered/Resolved]

NARRATIVE: CASE EVENT DATE: 2007
